FAERS Safety Report 10020145 (Version 2)
Quarter: 2014Q2

REPORT INFORMATION
  Report Type: Spontaneous
  Country: US (occurrence: US)
  Receive Date: 20140319
  Receipt Date: 20140422
  Transmission Date: 20141212
  Serious: No
  Sender: FDA-Public Use
  Company Number: US-009507513-1403USA008101

PATIENT
  Age: 63 Year
  Sex: Male
  Weight: 78.46 kg

DRUGS (7)
  1. JANUVIA [Suspect]
     Indication: DIABETES MELLITUS
     Dosage: 100 MG, QD
     Route: 048
     Dates: start: 200903
  2. GLIPIZIDE [Concomitant]
  3. METFORMIN [Concomitant]
  4. ENALAPRIL MALEATE [Concomitant]
  5. SIMVASTATIN TABLETS, USP [Concomitant]
  6. ZOLOFT [Concomitant]
  7. HYDROCHLOROTHIAZIDE [Concomitant]

REACTIONS (1)
  - Medication residue present [Not Recovered/Not Resolved]
